FAERS Safety Report 4737735-7 (Version None)
Quarter: 2005Q3

REPORT INFORMATION
  Report Type: 
  Country: None (occurrence: None)
  Receive Date: 20050802
  Receipt Date: 20050718
  Transmission Date: 20060218
  Serious: Yes (Hospitalization)
  Sender: FDA-Public Use
  Company Number: S05-FRA-02616-01

PATIENT
  Age: 81 Year
  Sex: Female

DRUGS (9)
  1. EBIXA                     MEMANTINE) [Suspect]
     Indication: DEMENTIA ALZHEIMER'S TYPE
     Dates: start: 20050512, end: 20050528
  2. FUROSEMIDE [Suspect]
     Indication: HYPERTENSION
  3. DICLOFENAC [Suspect]
     Indication: PAIN
     Dates: start: 20050525, end: 20050528
  4. LEVOTHYROXINE SODIUM [Suspect]
     Indication: HYPOTHYROIDISM
     Dosage: 1 UNK QD PO
     Route: 048
  5. ARICEPT [Suspect]
     Indication: DEMENTIA ALZHEIMER'S TYPE
     Dosage: 1 UNK QD PO
     Route: 048
  6. NICARDIPINE HCL [Suspect]
     Indication: HYPERTENSION
     Dosage: 0.5 UNK QD PO
     Route: 048
  7. POTASSIUM CHLORIDE [Concomitant]
  8. EQUANIL [Concomitant]
  9. IMOVANE (ZOPICLONE) [Concomitant]

REACTIONS (17)
  - ACUTE PULMONARY OEDEMA [None]
  - BLOOD CREATININE INCREASED [None]
  - BLOOD THYROID STIMULATING HORMONE INCREASED [None]
  - BLOOD UREA INCREASED [None]
  - C-REACTIVE PROTEIN INCREASED [None]
  - CONJUNCTIVITIS [None]
  - COUGH [None]
  - EOSINOPHIL COUNT INCREASED [None]
  - HAEMOGLOBIN DECREASED [None]
  - JOINT SWELLING [None]
  - OEDEMA PERIPHERAL [None]
  - RALES [None]
  - RASH ERYTHEMATOUS [None]
  - RASH MACULO-PAPULAR [None]
  - SKIN LESION [None]
  - VOMITING [None]
  - WHEEZING [None]
